FAERS Safety Report 5634683-5 (Version None)
Quarter: 2008Q1

REPORT INFORMATION
  Report Type: 
  Country: None (occurrence: None)
  Receive Date: 20080131
  Receipt Date: 20071106
  Transmission Date: 20080703
  Serious: No
  Sender: FDA-Public Use
  Company Number: 163-21880-07110415

PATIENT
  Age: 72 Year
  Sex: Female

DRUGS (3)
  1. REVLIMID [Suspect]
     Indication: MULTIPLE MYELOMA
     Dosage: 25 MG, DAILY 21/28 DAYS, ORAL ; 10 MG, DAILY 21/28, ORAL
     Route: 048
     Dates: start: 20070209, end: 20071101
  2. REVLIMID [Suspect]
     Indication: MULTIPLE MYELOMA
     Dosage: 25 MG, DAILY 21/28 DAYS, ORAL ; 10 MG, DAILY 21/28, ORAL
     Route: 048
     Dates: start: 20071109
  3. DECADONR (DEXAMETHASONE) [Concomitant]

REACTIONS (1)
  - LUNG DISORDER [None]
